FAERS Safety Report 8990870 (Version 2)
Quarter: 2013Q1

REPORT INFORMATION
  Report Type: Report from Study
  Country: JP (occurrence: JP)
  Receive Date: 20121231
  Receipt Date: 20130319
  Transmission Date: 20140127
  Serious: Yes (Hospitalization)
  Sender: FDA-Public Use
  Company Number: JP-009507513-1212JPN011109

PATIENT
  Age: 27 Year
  Sex: Female

DRUGS (6)
  1. REMERON [Suspect]
     Indication: DEPRESSION
     Dosage: 0.5 DF, QD
     Route: 048
     Dates: start: 20120621, end: 20120828
  2. REMERON [Suspect]
     Dosage: 1 DF, QD
     Route: 048
     Dates: start: 20120829
  3. LEXAPRO [Suspect]
     Indication: DEPRESSION
     Dosage: 10 MG, QD
     Route: 048
     Dates: start: 201204
  4. SOLANAX [Suspect]
     Indication: DEPRESSION
     Dosage: 1.2 MG, QD
     Route: 048
     Dates: start: 201206
  5. LOXONIN [Suspect]
     Indication: HEADACHE
     Dosage: 60 MG, QD
     Route: 048
  6. MUCOSTA [Suspect]
     Indication: PROPHYLAXIS
     Dosage: 300 MG, QD
     Route: 048

REACTIONS (2)
  - Fall [Unknown]
  - Fracture [Unknown]
